FAERS Safety Report 7211589-1 (Version None)
Quarter: 2011Q1

REPORT INFORMATION
  Report Type: 
  Country: None (occurrence: None)
  Receive Date: 20110105
  Receipt Date: 20110103
  Transmission Date: 20110831
  Serious: No
  Sender: FDA-Public Use
  Company Number: US-PFIZER INC-2011001062

PATIENT
  Sex: Female
  Weight: 159 kg

DRUGS (4)
  1. CELEBREX [Suspect]
     Indication: MUSCULOSKELETAL STIFFNESS
     Dosage: 100 MG, DAILY
     Route: 048
     Dates: start: 20010101
  2. CELEBREX [Suspect]
     Indication: OSTEOPOROSIS
  3. LYRICA [Concomitant]
     Dosage: UNK
  4. TRAMADOL [Concomitant]
     Dosage: UNK

REACTIONS (3)
  - DRUG EFFECT DECREASED [None]
  - HYPOKINESIA [None]
  - MUSCULOSKELETAL STIFFNESS [None]
